FAERS Safety Report 23040006 (Version 1)
Quarter: 2023Q4

REPORT INFORMATION
  Report Type: Report from Study
  Country: CN (occurrence: CN)
  Receive Date: 20231006
  Receipt Date: 20231006
  Transmission Date: 20240109
  Serious: Yes (Other)
  Sender: FDA-Public Use
  Company Number: CN-JNJFOC-20230966560

PATIENT

DRUGS (2)
  1. SPORANOX [Suspect]
     Active Substance: ITRACONAZOLE
     Indication: Acute lymphocytic leukaemia
     Dosage: (250 MG) AT A DOSE OF 5 MG KG-1-D-1 DISSOLVED IN 50 ML STERILE PHYSIOLOGICAL SALINE IN SLOW INTRAVEN
     Route: 041
  2. SPORANOX [Suspect]
     Active Substance: ITRACONAZOLE
     Indication: Pneumonia fungal

REACTIONS (9)
  - Drug-induced liver injury [Unknown]
  - Ileus paralytic [Recovered/Resolved]
  - Drug ineffective [Unknown]
  - Nausea [Unknown]
  - Vomiting [Unknown]
  - Abdominal pain [Unknown]
  - Transaminases increased [Unknown]
  - Off label use [Unknown]
  - Off label use [Unknown]
